FAERS Safety Report 8401603-X (Version None)
Quarter: 2012Q2

REPORT INFORMATION
  Report Type: 
  Country: None (occurrence: None)
  Receive Date: 20120601
  Receipt Date: 20120529
  Transmission Date: 20120825
  Serious: Yes (Life-Threatening, Other)
  Sender: FDA-Public Use
  Company Number: PHFR2012GB002446

PATIENT
  Sex: Male

DRUGS (5)
  1. ARIPIPRAZOLE [Concomitant]
     Dosage: 100 MG, DAILY
     Route: 048
  2. HYOSCINE HBR HYT [Concomitant]
     Dosage: 350 UG, DAILY
     Route: 048
  3. VALPROATE SODIUM [Concomitant]
     Indication: CONVULSION
     Dosage: 2 MG, DAILY
     Route: 048
  4. CLOZARIL [Suspect]
     Indication: SCHIZOPHRENIA
     Dosage: 450 MG, DAILY
     Route: 048
     Dates: start: 20080516
  5. VENLAFAXINE [Concomitant]
     Indication: AFFECTIVE DISORDER
     Dosage: 150 MG, DAILY
     Route: 048

REACTIONS (3)
  - BLOOD GLUCOSE ABNORMAL [None]
  - SARCOMA [None]
  - MENTAL DISORDER DUE TO A GENERAL MEDICAL CONDITION [None]
